FAERS Safety Report 13210136 (Version 1)
Quarter: 2017Q1

REPORT INFORMATION
  Report Type: Spontaneous
  Country: US (occurrence: US)
  Receive Date: 20170210
  Receipt Date: 20170210
  Transmission Date: 20170428
  Serious: No
  Sender: FDA-Public Use
  Company Number: US-TEVA-731688ACC

PATIENT
  Age: 24 Year
  Sex: Female
  Weight: 61.74 kg

DRUGS (1)
  1. AFTERA [Suspect]
     Active Substance: LEVONORGESTREL
     Indication: POST COITAL CONTRACEPTION
     Dates: start: 20170106, end: 20170106

REACTIONS (1)
  - Dysmenorrhoea [Recovered/Resolved]

NARRATIVE: CASE EVENT DATE: 20170106
